FAERS Safety Report 12075304 (Version 2)
Quarter: 2016Q1

REPORT INFORMATION
  Report Type: Report from Study
  Country: US (occurrence: US)
  Receive Date: 20160212
  Receipt Date: 20160330
  Transmission Date: 20160526
  Serious: Yes (Hospitalization)
  Sender: FDA-Public Use
  Company Number: US-BIOGEN-2015BI105323

PATIENT
  Age: 54 Year
  Sex: Female

DRUGS (5)
  1. AVONEX [Suspect]
     Active Substance: INTERFERON BETA-1A
     Indication: MULTIPLE SCLEROSIS
     Route: 030
  2. CODEINE [Concomitant]
     Active Substance: CODEINE
     Indication: PRODUCT USED FOR UNKNOWN INDICATION
     Route: 065
  3. MORPHINE [Concomitant]
     Active Substance: MORPHINE
     Indication: PRODUCT USED FOR UNKNOWN INDICATION
     Route: 065
  4. AVONEX [Suspect]
     Active Substance: INTERFERON BETA-1A
     Route: 030
     Dates: start: 20140828
  5. BACLOFEN. [Concomitant]
     Active Substance: BACLOFEN
     Indication: PRODUCT USED FOR UNKNOWN INDICATION
     Route: 065

REACTIONS (19)
  - Emotional distress [Unknown]
  - Hypoaesthesia [Recovered/Resolved]
  - Contusion [Unknown]
  - Femoral neck fracture [Recovered/Resolved]
  - Multiple sclerosis relapse [Recovered/Resolved with Sequelae]
  - Hip fracture [Recovered/Resolved]
  - Loss of consciousness [Unknown]
  - Reading disorder [Not Recovered/Not Resolved]
  - Somnolence [Unknown]
  - Mobility decreased [Unknown]
  - Nervous system disorder [Unknown]
  - Eyelid ptosis [Unknown]
  - Dysarthria [Unknown]
  - Gait disturbance [Not Recovered/Not Resolved]
  - Eye contusion [Unknown]
  - Osteoporosis [Not Recovered/Not Resolved]
  - Visual impairment [Not Recovered/Not Resolved]
  - Pain [Recovered/Resolved]
  - Eye symptom [Unknown]

NARRATIVE: CASE EVENT DATE: 20140828
